FAERS Safety Report 20189943 (Version 1)
Quarter: 2021Q4

REPORT INFORMATION
  Report Type: Spontaneous
  Country: US (occurrence: None)
  Receive Date: 20211215
  Receipt Date: 20211215
  Transmission Date: 20220303
  Serious: Yes (Death)
  Sender: FDA-Public Use
  Company Number: None

PATIENT
  Age: 89 Year
  Sex: Female

DRUGS (9)
  1. CAPECITABINE [Suspect]
     Active Substance: CAPECITABINE
     Indication: Lip and/or oral cavity cancer
     Dosage: FREQUENCY : DAILY;?
     Route: 048
     Dates: start: 20201211, end: 20211205
  2. LEVOTHYROXINE [Concomitant]
     Active Substance: LEVOTHYROXINE
  3. MEMANTINE [Concomitant]
     Active Substance: MEMANTINE
  4. METOPROLOL [Concomitant]
     Active Substance: METOPROLOL
  5. VITAMIN D [Concomitant]
     Active Substance: VITAMIN D NOS
  6. DONEPEZIL [Concomitant]
     Active Substance: DONEPEZIL
  7. LORAZEPAM [Concomitant]
     Active Substance: LORAZEPAM
  8. ELIQUIS [Concomitant]
     Active Substance: APIXABAN
  9. TORSEMIDE [Concomitant]
     Active Substance: TORSEMIDE

REACTIONS (2)
  - Death [None]
  - Cardiopulmonary failure [None]

NARRATIVE: CASE EVENT DATE: 20211205
